FAERS Safety Report 9265506 (Version 1)
Quarter: 2013Q2

REPORT INFORMATION
  Report Type: Spontaneous
  Country: US (occurrence: US)
  Receive Date: 20130501
  Receipt Date: 20130501
  Transmission Date: 20140414
  Serious: No
  Sender: FDA-Public Use
  Company Number: US-PFIZER INC-2013135286

PATIENT
  Age: 76 Year
  Sex: Female
  Weight: 66.67 kg

DRUGS (8)
  1. LYRICA [Suspect]
     Indication: NEURALGIA
     Dosage: UNK
     Route: 048
  2. LYRICA [Suspect]
     Indication: BACK PAIN
     Dosage: 75 MG, 2X/DAY
     Route: 048
     Dates: start: 20130425
  3. CRESTOR [Concomitant]
     Dosage: 20 MG, 1X/DAY
  4. SYNTHROID [Concomitant]
     Dosage: 137 UG, 1X/DAY
  5. AMLODIPINE [Concomitant]
     Dosage: 10 MG, UNK
  6. COZAAR [Concomitant]
     Dosage: 50 MG, 1X/DAY
  7. LOPRESSOR [Concomitant]
     Dosage: 50 MG, 2X/DAY
  8. CELEBREX [Concomitant]
     Dosage: 200 MG, 1X/DAY

REACTIONS (2)
  - Arthropathy [Unknown]
  - Therapeutic response unexpected [Unknown]
